FAERS Safety Report 21438706 (Version 1)
Quarter: 2022Q4

REPORT INFORMATION
  Report Type: Report from Study
  Country: BE (occurrence: BE)
  Receive Date: 20221011
  Receipt Date: 20221011
  Transmission Date: 20230113
  Serious: Yes (Hospitalization, Other)
  Sender: FDA-Public Use
  Company Number: BE-TAKEDA-2022TUS070721

PATIENT
  Age: 34 Year
  Sex: Female

DRUGS (2)
  1. VEDOLIZUMAB [Suspect]
     Active Substance: VEDOLIZUMAB
     Indication: Inflammatory bowel disease
     Dosage: 300 MILLIGRAM
     Route: 058
     Dates: start: 20171101, end: 201903
  2. MEDROL [Suspect]
     Active Substance: METHYLPREDNISOLONE
     Indication: Inflammatory bowel disease
     Dosage: 24 MILLIGRAM
     Route: 048
     Dates: start: 20180101

REACTIONS (6)
  - Intermenstrual bleeding [Not Recovered/Not Resolved]
  - Premature separation of placenta [Not Recovered/Not Resolved]
  - Premature labour [Recovered/Resolved]
  - Inflammation [Recovered/Resolved]
  - Anaemia [Recovered/Resolved]
  - Pregnancy [Recovered/Resolved]

NARRATIVE: CASE EVENT DATE: 20190701
